FAERS Safety Report 9694563 (Version 2)
Quarter: 2013Q4

REPORT INFORMATION
  Report Type: Spontaneous
  Country: PL (occurrence: PL)
  Receive Date: 20131118
  Receipt Date: 20131219
  Transmission Date: 20140711
  Serious: Yes (Other)
  Sender: FDA-Public Use
  Company Number: PL-ROCHE-1304800

PATIENT
  Age: 11 Year
  Sex: Female

DRUGS (1)
  1. SOMATROPIN [Suspect]
     Indication: GROWTH HORMONE DEFICIENCY
     Route: 065

REACTIONS (4)
  - Sleep apnoea syndrome [Recovered/Resolved]
  - Somnolence [Recovered/Resolved]
  - Tonsillar hypertrophy [Recovered/Resolved]
  - Adenoidal hypertrophy [Recovered/Resolved]
